FAERS Safety Report 7914101-4 (Version None)
Quarter: 2011Q4

REPORT INFORMATION
  Report Type: 
  Country: None (occurrence: None)
  Receive Date: 20111110
  Receipt Date: 20111031
  Transmission Date: 20120403
  Serious: Yes (Hospitalization)
  Sender: FDA-Public Use
  Company Number: 2011MA016020

PATIENT
  Age: 47 Year
  Sex: Male

DRUGS (3)
  1. BECLOMETHASONE DIPROPIONATE [Concomitant]
  2. NAPROXEN [Suspect]
     Indication: GOUT
     Dosage: 500 MG; BID; PO
     Route: 048
     Dates: start: 20111005, end: 20111015
  3. VENTOLIN [Concomitant]

REACTIONS (2)
  - GASTROINTESTINAL HAEMORRHAGE [None]
  - HAEMOGLOBIN DECREASED [None]
